FAERS Safety Report 5124319-4 (Version None)
Quarter: 2006Q4

REPORT INFORMATION
  Report Type: 
  Country: None (occurrence: None)
  Receive Date: 20061010
  Receipt Date: 20060330
  Transmission Date: 20070319
  Serious: Yes (Disabling)
  Sender: FDA-Public Use
  Company Number: GB-BOEHRINGER INGELHEIM PHARMACEUTICALS, INC.-2006-UK-01653UK

PATIENT
  Sex: Female

DRUGS (8)
  1. DIXARIT [Suspect]
     Indication: MENOPAUSE
     Route: 048
     Dates: start: 20050823, end: 20060301
  2. ATENOLOL [Concomitant]
     Indication: HYPERTENSION
     Route: 048
     Dates: start: 20020101
  3. ASPIRIN [Concomitant]
     Indication: CARDIOVASCULAR EVENT PROPHYLAXIS
     Route: 048
  4. BENDROFLUMETHIAZIDE [Concomitant]
     Indication: HYPERTENSION
     Route: 048
     Dates: start: 20010101
  5. LEVOTHYROXINE SODIUM [Concomitant]
     Indication: HYPOTHYROIDISM
     Route: 048
     Dates: start: 19930101
  6. DIHYDROCODEINE BITARTRATE INJ [Concomitant]
     Indication: MUSCULOSKELETAL PAIN
     Route: 048
     Dates: start: 20030101
  7. ZOPICLONE [Concomitant]
     Indication: DEPRESSION
     Route: 048
  8. DOSMEPIN [Concomitant]
     Route: 048

REACTIONS (3)
  - MUSCULOSKELETAL STIFFNESS [None]
  - PARAESTHESIA [None]
  - SENSORY DISTURBANCE [None]
